FAERS Safety Report 6134441-1 (Version None)
Quarter: 2009Q1

REPORT INFORMATION
  Report Type: 
  Country: None (occurrence: None)
  Receive Date: 20090327
  Receipt Date: 20090319
  Transmission Date: 20090719
  Serious: Yes (Hospitalization)
  Sender: FDA-Public Use
  Company Number: US-AMGEN-QUU339304

PATIENT
  Sex: Female

DRUGS (2)
  1. ENBREL [Suspect]
     Indication: PSORIATIC ARTHROPATHY
     Route: 058
     Dates: start: 20051101
  2. PLAQUENIL [Concomitant]
     Route: 048

REACTIONS (4)
  - FALL [None]
  - FEMUR FRACTURE [None]
  - PNEUMONIA [None]
  - URINARY TRACT INFECTION [None]
